FAERS Safety Report 5964562-5 (Version None)
Quarter: 2008Q4

REPORT INFORMATION
  Report Type: 
  Country: None (occurrence: None)
  Receive Date: 20081119
  Receipt Date: 20081104
  Transmission Date: 20090506
  Serious: Yes (Hospitalization)
  Sender: FDA-Public Use
  Company Number: 2008S1019150

PATIENT
  Age: 34 Year
  Sex: Male

DRUGS (11)
  1. CLARITHROMYCIN [Suspect]
     Indication: MYCOBACTERIUM ABSCESSUS INFECTION
  2. CLARITHROMYCIN [Suspect]
     Indication: PSEUDOMONAS INFECTION
  3. COLOMYCIN (COLISTIN) [Suspect]
     Indication: DRUG USE FOR UNKNOWN INDICATION
     Dosage: INTRAVENOUS
     Route: 042
  4. INTERFERON GAMMA (INTERFERON GAMMA) [Suspect]
     Indication: MYCOBACTERIUM ABSCESSUS INFECTION
     Dosage: SUBCUTANEOUS
     Route: 058
  5. INTERFERON GAMMA (INTERFERON GAMMA) [Suspect]
     Indication: PSEUDOMONAS INFECTION
     Dosage: SUBCUTANEOUS
     Route: 058
  6. MEROPENEM (MEROPENEM) [Suspect]
     Indication: DRUG USE FOR UNKNOWN INDICATION
     Dosage: INTRAVENOUS
     Route: 042
  7. MINOCYCLINE HCL [Suspect]
     Indication: MYCOBACTERIUM ABSCESSUS INFECTION
  8. MINOCYCLINE HCL [Suspect]
     Indication: PSEUDOMONAS INFECTION
  9. OMEPRAZOLE [Suspect]
     Indication: GASTROOESOPHAGEAL REFLUX DISEASE
  10. TOBRAMYCIN [Suspect]
     Indication: MYCOBACTERIUM ABSCESSUS INFECTION
  11. TOBRAMYCIN [Suspect]
     Indication: PSEUDOMONAS INFECTION

REACTIONS (1)
  - PSEUDOMEMBRANOUS COLITIS [None]
